FAERS Safety Report 25884074 (Version 1)
Quarter: 2025Q4

REPORT INFORMATION
  Report Type: Spontaneous
  Country: US (occurrence: US)
  Receive Date: 20251006
  Receipt Date: 20251006
  Transmission Date: 20260117
  Serious: Yes (Death, Hospitalization)
  Sender: ACCORD
  Company Number: US-Accord-507077

PATIENT
  Age: 82 Year
  Sex: Male
  Weight: 49.8 kg

DRUGS (12)
  1. CARBOPLATIN [Suspect]
     Active Substance: CARBOPLATIN
     Indication: Small cell lung cancer extensive stage
     Dosage: 375 MILLIGRAM, Q3W; IV DRIP
     Route: 042
     Dates: start: 20250616, end: 20250616
  2. ETOPOSIDE [Suspect]
     Active Substance: ETOPOSIDE
     Indication: Small cell lung cancer extensive stage
     Dosage: 170 MILLIGRAM, Q3W; IV DRIP
     Route: 042
     Dates: start: 20250616, end: 20250618
  3. ATEZOLIZUMAB [Concomitant]
     Active Substance: ATEZOLIZUMAB
     Indication: Small cell lung cancer extensive stage
     Dosage: 1200 MILLIGRAM, Q3W; IV DRIP?STRENGTH: 10 MILLIGRAM PER MILLILITRE
     Route: 042
     Dates: start: 20250616, end: 20250616
  4. ETOPOSIDE [Suspect]
     Active Substance: ETOPOSIDE
     Indication: Small cell lung cancer extensive stage
     Dosage: 170 MILLIGRAM, Q3W; IV DRIP
     Route: 042
     Dates: start: 20250708, end: 20250710
  5. ETOPOSIDE [Suspect]
     Active Substance: ETOPOSIDE
     Indication: Small cell lung cancer extensive stage
     Dosage: 164 MILLIGRAM, Q3W; IV DRIP
     Route: 042
     Dates: start: 20250729, end: 20250731
  6. ETOPOSIDE [Suspect]
     Active Substance: ETOPOSIDE
     Indication: Small cell lung cancer extensive stage
     Dosage: 164 MILLIGRAM, Q3W; IV DRIP
     Route: 042
     Dates: start: 20250819, end: 20250821
  7. ATEZOLIZUMAB [Concomitant]
     Active Substance: ATEZOLIZUMAB
     Indication: Small cell lung cancer extensive stage
     Dosage: 1200 MILLIGRAM, Q3W; IV DRIP?STRENGTH: 10 MILLIGRAM PER MILLILITRE
     Route: 042
     Dates: start: 20250708, end: 20250708
  8. ATEZOLIZUMAB [Concomitant]
     Active Substance: ATEZOLIZUMAB
     Indication: Small cell lung cancer extensive stage
     Dosage: 1200 MILLIGRAM, Q3W; IV DRIP?STRENGTH: 10 MILLIGRAM PER MILLILITRE
     Route: 042
     Dates: start: 20250819, end: 20250819
  9. CARBOPLATIN [Suspect]
     Active Substance: CARBOPLATIN
     Indication: Small cell lung cancer extensive stage
     Dosage: 419 MILLIGRAM, Q3W; IV DRIP
     Route: 042
     Dates: start: 20250819, end: 20250819
  10. ATEZOLIZUMAB [Concomitant]
     Active Substance: ATEZOLIZUMAB
     Indication: Small cell lung cancer extensive stage
     Dosage: 1200 MILLIGRAM, Q3W; IV DRIP?STRENGTH: 10 MILLIGRAM PER MILLILITRE
     Route: 042
     Dates: start: 20250729, end: 20250729
  11. CARBOPLATIN [Suspect]
     Active Substance: CARBOPLATIN
     Indication: Small cell lung cancer extensive stage
     Dosage: 417 MILLIGRAM, Q3W; IV DRIP
     Route: 042
     Dates: start: 20250708, end: 20250708
  12. CARBOPLATIN [Suspect]
     Active Substance: CARBOPLATIN
     Indication: Small cell lung cancer extensive stage
     Dosage: 417 MILLIGRAM, Q3W; IV DRIP
     Route: 042
     Dates: start: 20250729, end: 20250729

REACTIONS (1)
  - Respiratory failure [Fatal]

NARRATIVE: CASE EVENT DATE: 20250914
